FAERS Safety Report 9871442 (Version 2)
Quarter: 2014Q1

REPORT INFORMATION
  Report Type: Spontaneous
  Country: JP (occurrence: JP)
  Receive Date: 20140205
  Receipt Date: 20140213
  Transmission Date: 20141002
  Serious: Yes (Hospitalization)
  Sender: FDA-Public Use
  Company Number: PHHY2014JP013506

PATIENT
  Age: 55 Year
  Sex: Male

DRUGS (8)
  1. ISONIAZID [Suspect]
     Indication: PULMONARY TUBERCULOSIS
     Dosage: 300 MG, QD
  2. ISONIAZID [Suspect]
     Dosage: 100 MG, UNK
  3. ISONIAZID [Suspect]
     Dosage: 200 MG, UNK
  4. ISONIAZID [Suspect]
     Dosage: 300 MG, UNK
  5. ISONIAZID [Suspect]
     Dosage: 100 MG, QD
  6. RIFAMPICIN [Concomitant]
     Indication: PULMONARY TUBERCULOSIS
     Dosage: 450 MG, QD
  7. ETHAMBUTOL [Concomitant]
     Indication: PULMONARY TUBERCULOSIS
     Dosage: 500 MG, QD
  8. PYRIDOXINE [Concomitant]
     Indication: PULMONARY TUBERCULOSIS
     Dosage: 30 MG, QD

REACTIONS (4)
  - Altered state of consciousness [Recovering/Resolving]
  - Drug level increased [Unknown]
  - Feeling drunk [Recovering/Resolving]
  - Nausea [Recovering/Resolving]
